FAERS Safety Report 9915004 (Version 2)
Quarter: 2014Q1

REPORT INFORMATION
  Report Type: Spontaneous
  Country: FR (occurrence: FR)
  Receive Date: 20140220
  Receipt Date: 20140220
  Transmission Date: 20141002
  Serious: Yes (Hospitalization, Other)
  Sender: FDA-Public Use
  Company Number: FR-BMSGILMSD-2014-0092586

PATIENT
  Age: 68 Year
  Sex: Male
  Weight: 66 kg

DRUGS (6)
  1. ATRIPLA [Suspect]
     Indication: HIV INFECTION
     Dosage: UNK
     Dates: start: 20090609, end: 20130924
  2. APROVEL [Concomitant]
     Dosage: 1 DF, QD
  3. SODIUM BICARBONATE [Concomitant]
     Dosage: 1 G, BID
  4. UVEDOSE [Concomitant]
  5. CRESTOR [Concomitant]
  6. ZOXAN                              /00639302/ [Concomitant]

REACTIONS (2)
  - Peritoneal dialysis [Not Recovered/Not Resolved]
  - Renal failure acute [Not Recovered/Not Resolved]
